FAERS Safety Report 10244212 (Version 2)
Quarter: 2014Q3

REPORT INFORMATION
  Report Type: Report from Study
  Country: US (occurrence: US)
  Receive Date: 20140618
  Receipt Date: 20140702
  Transmission Date: 20150326
  Serious: Yes (Hospitalization)
  Sender: FDA-Public Use
  Company Number: US-PFIZER INC-2014157599

PATIENT
  Age: 21 Year
  Sex: Female
  Weight: 118.37 kg

DRUGS (10)
  1. SINGULAIR [Concomitant]
     Active Substance: MONTELUKAST SODIUM
     Indication: SEASONAL ALLERGY
     Dosage: 10MG (ONE TABLET) ONCE DAILY AT NIGHT
     Route: 048
     Dates: start: 2002
  2. XOPENEX HFA AERO [Concomitant]
     Indication: ASTHMA
     Dosage: PRN WHEEZING; ONE TO TWO PUFFS EVERY 4 HOURS AS NEEDED
     Route: 055
     Dates: start: 2005
  3. CITRACAL [Concomitant]
     Active Substance: CALCIUM CITRATE
     Indication: PROPHYLAXIS
     Dosage: 600MG (ONE TABLET) DAILY
     Route: 048
     Dates: start: 20120530
  4. TOFACITINIB CITRATE [Suspect]
     Active Substance: TOFACITINIB CITRATE
     Indication: COLITIS ULCERATIVE
     Dosage: UNK
     Dates: start: 20120716
  5. HYOSCYAMINE SULFATE. [Concomitant]
     Active Substance: HYOSCYAMINE SULFATE
     Indication: ABDOMINAL PAIN
  6. MONONESSA [Suspect]
     Active Substance: ETHINYL ESTRADIOL\NORGESTIMATE
     Indication: CONTRACEPTION
     Dosage: 0.25MG/35MCG (ONE TABLET) ONCE DAILY
     Route: 048
     Dates: start: 20140201
  7. HYOSCYAMINE SULFATE. [Concomitant]
     Active Substance: HYOSCYAMINE SULFATE
     Indication: ABDOMINAL PAIN
     Dosage: 0.125 MG;ONE TABLET EVERY 4 HOURS AS NEEDED
     Route: 048
     Dates: start: 20120105
  8. LIALDA [Concomitant]
     Active Substance: MESALAMINE
     Indication: COLITIS ULCERATIVE
     Dosage: 1.2 G, 4X/DAY
     Route: 048
     Dates: start: 20111220
  9. ZYRTEC [Concomitant]
     Active Substance: CETIRIZINE HYDROCHLORIDE
     Indication: SEASONAL ALLERGY
     Dosage: 10 MG Q DAY; 1 DF (TAB), DAILY
     Route: 048
     Dates: start: 20140504
  10. XOPENEX HFA AERO [Concomitant]
     Indication: WHEEZING

REACTIONS (1)
  - Pulmonary embolism [Recovered/Resolved]

NARRATIVE: CASE EVENT DATE: 20140604
